FAERS Safety Report 4376126-8 (Version None)
Quarter: 2004Q2

REPORT INFORMATION
  Report Type: 
  Country: None (occurrence: None)
  Receive Date: 20040611
  Receipt Date: 20030529
  Transmission Date: 20050107
  Serious: Yes (Hospitalization)
  Sender: FDA-Public Use
  Company Number: PL-ROCHE-339040

PATIENT
  Age: 72 Year
  Sex: Female
  Weight: 62 kg

DRUGS (5)
  1. IBANDRONIC ACID [Suspect]
     Indication: OSTEOPOROSIS POSTMENOPAUSAL
     Dosage: DOSE, ROUTE AND FREQUENCY BLINDED. IV DOSE DISCONTINUED ON 20 FEB 2003.
     Route: 065
     Dates: start: 20021125, end: 20030428
  2. CAPTOPRIL [Concomitant]
     Dates: start: 19991220
  3. OMEPRAZOLE [Concomitant]
     Dates: start: 20020919
  4. TRIMIPRAMINE [Concomitant]
     Dates: start: 20020919
  5. METOCLOPRAMIDE [Concomitant]
     Dates: start: 20020919

REACTIONS (1)
  - GASTRITIS [None]
